FAERS Safety Report 23170450 (Version 1)
Quarter: 2023Q4

REPORT INFORMATION
  Report Type: Spontaneous
  Country: FR (occurrence: FR)
  Receive Date: 20231110
  Receipt Date: 20231110
  Transmission Date: 20240109
  Serious: Yes (Other)
  Sender: FDA-Public Use
  Company Number: FR-JNJFOC-20200711963

PATIENT
  Age: 64 Year
  Sex: Female

DRUGS (5)
  1. MELPHALAN [Suspect]
     Active Substance: MELPHALAN
     Indication: Plasma cell myeloma
     Dosage: 80 MILLIGRAM, EVERY WEEK
     Route: 065
     Dates: end: 20181101
  2. MELPHALAN [Suspect]
     Active Substance: MELPHALAN
     Dosage: 20 MILLIGRAM, EVERY WEEK, 20 MG/DOSE 4 DOSES/WEEK 1 WEEK(S)/CYCLE D1.D2.D3.D4
     Route: 065
     Dates: end: 20181101
  3. PREDNISOLONE [Suspect]
     Active Substance: PREDNISOLONE
     Indication: Plasma cell myeloma
     Dosage: 608 MILLIGRAM, EVERY WEEK
     Route: 065
     Dates: end: 20181101
  4. PREDNISOLONE [Suspect]
     Active Substance: PREDNISOLONE
     Dosage: 152 MILLIGRAM, EVERY WEEK,152 MG/DOSE 4 DOSES/WEEK 1 WEEK(S)/CYCLE
     Route: 065
     Dates: end: 20181101
  5. VELCADE [Suspect]
     Active Substance: BORTEZOMIB
     Indication: Plasma cell myeloma
     Dosage: 2.4 MILLIGRAM,2.4 MG/DOSE D1. J8. J22. D29
     Route: 065
     Dates: end: 20181101

REACTIONS (4)
  - Cytopenia [Unknown]
  - Thrombocytopenia [Unknown]
  - Intentional product use issue [Unknown]
  - Off label use [Unknown]

NARRATIVE: CASE EVENT DATE: 20181101
